FAERS Safety Report 5019386-2 (Version None)
Quarter: 2006Q2

REPORT INFORMATION
  Report Type: 
  Country: None (occurrence: None)
  Receive Date: 20060531
  Receipt Date: 20060515
  Transmission Date: 20061013
  Serious: Yes (Other)
  Sender: FDA-Public Use
  Company Number: 2005047340

PATIENT
  Age: 53 Year
  Sex: Male
  Weight: 100 kg

DRUGS (10)
  1. LYRICA [Suspect]
     Indication: EPILEPSY
     Dosage: 150 MG (75 MG 2 IN 1 D) ORAL
     Route: 048
     Dates: start: 20040930, end: 20050316
  2. CITALOPRAM HYDROBROMIDE [Suspect]
     Indication: ILL-DEFINED DISORDER
     Dosage: 1 IN1 D ORAL
     Route: 048
     Dates: end: 20051101
  3. BLOPRESS (CANDESARTAN CILEXETIL) [Concomitant]
  4. CLONIDINE [Concomitant]
  5. METOPROLOL SUCCINATE [Concomitant]
  6. ALL OTHER THERAPEUTIC PRODUCTS (ALL OTHER THERAPEUTIC PRODUCTS) [Concomitant]
  7. TOPAMAX [Concomitant]
  8. NEURONTIN [Concomitant]
  9. NEXIUM [Concomitant]
  10. BACLOFEN [Concomitant]

REACTIONS (19)
  - ACTIVITIES OF DAILY LIVING IMPAIRED [None]
  - APHASIA [None]
  - BLOOD CHOLESTEROL INCREASED [None]
  - BLOOD TRIGLYCERIDES INCREASED [None]
  - CEREBROVASCULAR ACCIDENT [None]
  - CONVULSION [None]
  - DENTAL CARIES [None]
  - DISTURBANCE IN ATTENTION [None]
  - DYSPHAGIA [None]
  - ENAMEL ANOMALY [None]
  - HYPERAESTHESIA [None]
  - MASTICATION DISORDER [None]
  - MOTOR DYSFUNCTION [None]
  - ORAL CANDIDIASIS [None]
  - PERIODONTITIS [None]
  - TONGUE COATED [None]
  - TONGUE DISCOLOURATION [None]
  - TOOTH DECALCIFICATION [None]
  - TOOTH DISCOLOURATION [None]
